FAERS Safety Report 5047521-9 (Version None)
Quarter: 2006Q3

REPORT INFORMATION
  Report Type: 
  Country: None (occurrence: None)
  Receive Date: 20060711
  Receipt Date: 20060627
  Transmission Date: 20061208
  Serious: Yes (Hospitalization, Other)
  Sender: FDA-Public Use
  Company Number: US-AMGEN-STX184638

PATIENT
  Sex: Female

DRUGS (2)
  1. ENBREL [Suspect]
     Indication: RHEUMATOID ARTHRITIS
     Route: 058
     Dates: start: 20010101
  2. METHOTREXATE [Concomitant]
     Dates: start: 19960101

REACTIONS (4)
  - HERPES ZOSTER [None]
  - INJECTION SITE PAIN [None]
  - KNEE ARTHROPLASTY [None]
  - UPPER RESPIRATORY TRACT INFECTION [None]
